FAERS Safety Report 26073063 (Version 1)
Quarter: 2025Q4

REPORT INFORMATION
  Report Type: Spontaneous
  Country: EU (occurrence: EU)
  Receive Date: 20251121
  Receipt Date: 20251121
  Transmission Date: 20260117
  Serious: Yes (Hospitalization)
  Sender: ACCORD
  Company Number: None

PATIENT
  Age: 74 Year
  Sex: Male

DRUGS (2)
  1. PEMETREXED [Suspect]
     Active Substance: PEMETREXED
     Indication: Lung adenocarcinoma
     Dosage: 500MG/M2, STRENGTH:100 MG, POWDER FOR CONCENTRATE FOR SOLUTION FOR INFUSION 1 VIAL
     Dates: start: 20240626, end: 20250709
  2. PEMBROLIZUMAB [Suspect]
     Active Substance: PEMBROLIZUMAB
     Indication: Lung adenocarcinoma
     Dosage: 25 MG/ML, 1 VIAL OF 4 ML, 2MG/KG EVERY 21 DAYS
     Dates: start: 20240626, end: 20250709

REACTIONS (2)
  - Immune-mediated enterocolitis [Recovering/Resolving]
  - Immune-mediated hepatitis [Recovering/Resolving]

NARRATIVE: CASE EVENT DATE: 20250813
